FAERS Safety Report 8945383 (Version 2)
Quarter: 2013Q1

REPORT INFORMATION
  Report Type: Report from Study
  Country: CA (occurrence: CA)
  Receive Date: 20121205
  Receipt Date: 20130205
  Transmission Date: 20140127
  Serious: Yes (Hospitalization, Other)
  Sender: FDA-Public Use
  Company Number: PHHY2012CA110131

PATIENT
  Age: 59 Year
  Sex: Female

DRUGS (3)
  1. CLOZARIL [Suspect]
     Indication: BIPOLAR I DISORDER
     Dosage: UNK UKN, UNK
     Dates: start: 1997
  2. CLOZARIL [Suspect]
     Dosage: 450 UG, DAILY
     Route: 048
  3. WELLBUTRIN [Concomitant]
     Dosage: UNK UKN, UNK

REACTIONS (4)
  - Hepatitis acute [Recovering/Resolving]
  - Neutrophil count increased [Unknown]
  - White blood cell count increased [Unknown]
  - Pneumonia [Unknown]
